FAERS Safety Report 18420426 (Version 1)
Quarter: 2020Q4

REPORT INFORMATION
  Report Type: Spontaneous
  Country: US (occurrence: US)
  Receive Date: 20201023
  Receipt Date: 20201023
  Transmission Date: 20210114
  Serious: No
  Sender: FDA-Public Use
  Company Number: None

PATIENT
  Age: 74 Year
  Sex: Female

DRUGS (6)
  1. FUROSEMIDE 20 MG TABLET [Concomitant]
     Active Substance: FUROSEMIDE
     Dates: start: 20200628
  2. AMLODIPINE 10 MG TABLET [Concomitant]
     Active Substance: AMLODIPINE BESYLATE
     Dates: start: 20190211
  3. CALCIUM ACETATE 667 MG CAPSULE [Concomitant]
     Dates: start: 20190520
  4. OXYCODONE 5 MG IMMEDIATE RELEASE TABLET [Concomitant]
     Dates: start: 20200917
  5. PANTOPRAZOLE 40 MG TABLET [Concomitant]
     Active Substance: PANTOPRAZOLE
     Dates: start: 20200301
  6. OCTREOTIDE. [Suspect]
     Active Substance: OCTREOTIDE
     Indication: VASOACTIVE INTESTINAL POLYPEPTIDE INCREASED
     Route: 058
     Dates: start: 20200708, end: 20200731

REACTIONS (1)
  - Death [None]

NARRATIVE: CASE EVENT DATE: 20201023
